FAERS Safety Report 24107906 (Version 2)
Quarter: 2024Q3

REPORT INFORMATION
  Report Type: Spontaneous
  Country: US (occurrence: US)
  Receive Date: 20240718
  Receipt Date: 20240808
  Transmission Date: 20241017
  Serious: Yes (Other)
  Sender: Kilitch Healthcare
  Company Number: US-KHC-000050

PATIENT
  Sex: Female

DRUGS (1)
  1. EXTREME RELIEF LUBRICANT [Suspect]
     Active Substance: POLYETHYLENE GLYCOL 400\PROPYLENE GLYCOL
     Indication: Product used for unknown indication
     Dosage: ONE BOTTLE USED AND OTHER BOTTLE A FEW TIMES
     Route: 065

REACTIONS (6)
  - Visual impairment [Unknown]
  - Eye pain [Unknown]
  - Pain [Unknown]
  - Eye pain [Unknown]
  - Recalled product administered [Unknown]
  - Blindness [Unknown]

NARRATIVE: CASE EVENT DATE: 20230101
